FAERS Safety Report 11882581 (Version 2)
Quarter: 2016Q1

REPORT INFORMATION
  Report Type: Spontaneous
  Country: US (occurrence: US)
  Receive Date: 20151231
  Receipt Date: 20160203
  Transmission Date: 20160526
  Serious: No
  Sender: FDA-Public Use
  Company Number: US-GLAXOSMITHKLINE-US2015GSK179245

PATIENT
  Sex: Female

DRUGS (1)
  1. SUMATRIPTAN SUCCINATE SOLUTION FOR INJECTION IN PRE-FILLED PEN [Suspect]
     Active Substance: SUMATRIPTAN SUCCINATE
     Indication: MIGRAINE
     Dosage: 6 MG, UNK
     Route: 042

REACTIONS (7)
  - Device malfunction [Unknown]
  - Feeling abnormal [Unknown]
  - Drug dose omission [Unknown]
  - Product quality issue [Unknown]
  - Anxiety [Unknown]
  - Frustration tolerance decreased [Unknown]
  - Fear [Unknown]
